FAERS Safety Report 23176311 (Version 1)
Quarter: 2023Q4

REPORT INFORMATION
  Report Type: Report from Study
  Country: US (occurrence: US)
  Receive Date: 20231113
  Receipt Date: 20231113
  Transmission Date: 20240110
  Serious: No
  Sender: FDA-Public Use
  Company Number: US-drreddys-SPO/USA/23/0179102

PATIENT
  Age: 29 Year
  Sex: Female
  Weight: 113.09 kg

DRUGS (6)
  1. SAPROPTERIN DIHYDROCHLORIDE [Suspect]
     Active Substance: SAPROPTERIN DIHYDROCHLORIDE
     Indication: Phenylketonuria
     Dosage: TWENTY TWO (22) TABLETS BY 4 TO 8 OUNCES OF WATER OR APPLE JUICE AND DRINK BY MOUTH
     Route: 048
  2. BUDESONIDE-FORMOTEROL FUMARATE [Concomitant]
     Indication: Product used for unknown indication
  3. ALBUTEROL SULFATE HFA 90 MCG HFA AER AD [Concomitant]
     Indication: Product used for unknown indication
  4. BECLOMETHASONE DIPROPIONATE [Concomitant]
     Active Substance: BECLOMETHASONE DIPROPIONATE
     Indication: Product used for unknown indication
  5. PROAIR HFA 90 MCG HFA AER AD [Concomitant]
     Indication: Product used for unknown indication
  6. OMEPRAZOLE [Concomitant]
     Active Substance: OMEPRAZOLE
     Indication: Product used for unknown indication

REACTIONS (3)
  - Laboratory test abnormal [Unknown]
  - Product dose omission issue [Unknown]
  - Product administration interrupted [Unknown]
